FAERS Safety Report 12988251 (Version 1)
Quarter: 2016Q4

REPORT INFORMATION
  Report Type: Spontaneous
  Country: IT (occurrence: IT)
  Receive Date: 20161130
  Receipt Date: 20161130
  Transmission Date: 20170207
  Serious: Yes (Life-Threatening, Hospitalization, Other)
  Sender: FDA-Public Use
  Company Number: IT-BAUSCH-BL-2016-029945

PATIENT
  Age: 27 Year
  Sex: Male

DRUGS (1)
  1. TESTOSTERONE ENANTATE [Suspect]
     Active Substance: TESTOSTERONE
     Indication: ANDROGEN INSENSITIVITY SYNDROME
     Route: 030

REACTIONS (1)
  - Colorectal cancer [Not Recovered/Not Resolved]
